FAERS Safety Report 7349489-9 (Version None)
Quarter: 2011Q1

REPORT INFORMATION
  Report Type: 
  Country: None (occurrence: None)
  Receive Date: 20110314
  Receipt Date: 20110119
  Transmission Date: 20110831
  Serious: No
  Sender: FDA-Public Use
  Company Number: A0908901A

PATIENT
  Sex: Male

DRUGS (1)
  1. AUGMENTIN XR [Suspect]
     Indication: DIVERTICULITIS
     Dosage: 875MG TWICE PER DAY
     Route: 065
     Dates: start: 20110117

REACTIONS (1)
  - BODY TEMPERATURE DECREASED [None]
